FAERS Safety Report 7150834-8 (Version None)
Quarter: 2010Q4

REPORT INFORMATION
  Report Type: 
  Country: None (occurrence: None)
  Receive Date: 20101210
  Receipt Date: 20101129
  Transmission Date: 20110411
  Serious: Yes (Hospitalization, Other)
  Sender: FDA-Public Use
  Company Number: PHHY2010US81872

PATIENT
  Sex: Female

DRUGS (9)
  1. SANDOSTATIN LAR [Suspect]
     Dosage: UNK
  2. WELCHOL [Concomitant]
  3. LOPERAMIDE [Concomitant]
  4. DIPHENOXYLATE [Concomitant]
  5. GLUMETZA [Concomitant]
  6. GABAPENTIN [Concomitant]
  7. LEXAPRO [Concomitant]
  8. CLONAZEPAM [Concomitant]
  9. TRAZODONE [Concomitant]

REACTIONS (6)
  - COLOSTOMY [None]
  - DIARRHOEA [None]
  - FEELING ABNORMAL [None]
  - HERNIA [None]
  - PAIN [None]
  - VOMITING [None]
